FAERS Safety Report 5958867-1 (Version None)
Quarter: 2008Q4

REPORT INFORMATION
  Report Type: 
  Country: None (occurrence: None)
  Receive Date: 20081119
  Receipt Date: 20081107
  Transmission Date: 20090506
  Serious: Yes (Other)
  Sender: FDA-Public Use
  Company Number: PL-AMGEN-UK318103

PATIENT
  Sex: Female

DRUGS (2)
  1. KINERET [Suspect]
     Indication: OSTEOARTHRITIS
  2. METHOTREXATE [Concomitant]

REACTIONS (4)
  - HYPERSENSITIVITY [None]
  - JOINT EFFUSION [None]
  - RASH [None]
  - SWELLING [None]
